FAERS Safety Report 8317609-5 (Version None)
Quarter: 2012Q2

REPORT INFORMATION
  Report Type: 
  Country: None (occurrence: None)
  Receive Date: 20120427
  Receipt Date: 20090707
  Transmission Date: 20120825
  Serious: No
  Sender: FDA-Public Use
  Company Number: US-TEVA-2009006816

PATIENT
  Sex: Female
  Weight: 64.014 kg

DRUGS (5)
  1. EFFEXOR XR [Concomitant]
  2. NUVIGIL [Suspect]
     Indication: FATIGUE
     Route: 048
     Dates: start: 20090604, end: 20090605
  3. SYNTHROID [Concomitant]
  4. KETOROLAC TROMETHAMINE [Concomitant]
  5. TOPAMAX [Concomitant]

REACTIONS (5)
  - NAUSEA [None]
  - DIZZINESS [None]
  - VISUAL IMPAIRMENT [None]
  - HYPOAESTHESIA [None]
  - PARAESTHESIA [None]
